FAERS Safety Report 7542958-8 (Version None)
Quarter: 2011Q2

REPORT INFORMATION
  Report Type: 
  Country: None (occurrence: None)
  Receive Date: 20110613
  Receipt Date: 20110608
  Transmission Date: 20111010
  Serious: Yes (Hospitalization, Other)
  Sender: FDA-Public Use
  Company Number: AT-BRISTOL-MYERS SQUIBB COMPANY-15812548

PATIENT
  Age: 27 Year
  Sex: Female

DRUGS (4)
  1. ABILIFY [Suspect]
     Indication: BORDERLINE PERSONALITY DISORDER
     Route: 048
  2. TRAZODONE HCL [Concomitant]
  3. ESCITALOPRAM [Concomitant]
  4. LORAZEPAM [Concomitant]

REACTIONS (2)
  - SUICIDAL IDEATION [None]
  - PULMONARY EMBOLISM [None]
